FAERS Safety Report 7028792-6 (Version None)
Quarter: 2010Q4

REPORT INFORMATION
  Report Type: 
  Country: None (occurrence: None)
  Receive Date: 20101004
  Receipt Date: 20101004
  Transmission Date: 20110411
  Serious: Yes (Hospitalization)
  Sender: FDA-Public Use
  Company Number: None

PATIENT
  Sex: Female
  Weight: 60 kg

DRUGS (4)
  1. TRISENOX [Suspect]
     Indication: NEOPLASM MALIGNANT
     Dosage: 0.25MG/KG IV CYCLE D 1-5
     Route: 042
     Dates: start: 20100830, end: 20100902
  2. TRISENOX [Suspect]
     Indication: NEOPLASM MALIGNANT
     Dosage: 0.25MG/KG IV CYCLE D 1-5
     Route: 042
     Dates: start: 20100927, end: 20100930
  3. OXYCODONE [Concomitant]
  4. LOVENOX [Concomitant]

REACTIONS (1)
  - PLEURAL EFFUSION [None]
